FAERS Safety Report 16357259 (Version 1)
Quarter: 2019Q2

REPORT INFORMATION
  Report Type: Spontaneous
  Country: US (occurrence: US)
  Receive Date: 20190527
  Receipt Date: 20190527
  Transmission Date: 20190711
  Serious: No
  Sender: FDA-Public Use
  Company Number: US-TORRENT-00007365

PATIENT
  Age: 90 Year
  Sex: Female
  Weight: 54 kg

DRUGS (1)
  1. LOSARTAN AND HYDROCHLOROTHIAZIDE [Suspect]
     Active Substance: HYDROCHLOROTHIAZIDE\LOSARTAN POTASSIUM
     Indication: HYPERTENSION
     Dosage: LOSARTAN PILLS, AT 50/12. ONCE A DAY A YEAR AGO.  STOPPED TAKING A MONTH AGO.
     Dates: start: 2018, end: 201901

REACTIONS (1)
  - Blood pressure decreased [Recovered/Resolved]
